FAERS Safety Report 8250164-7 (Version None)
Quarter: 2012Q2

REPORT INFORMATION
  Report Type: 
  Country: None (occurrence: None)
  Receive Date: 20120402
  Receipt Date: 20120319
  Transmission Date: 20120825
  Serious: Yes (Other)
  Sender: FDA-Public Use
  Company Number: BR-AMGEN-BRASP2011061558

PATIENT
  Age: 50 Year
  Sex: Female
  Weight: 64 kg

DRUGS (10)
  1. ENBREL [Suspect]
     Dosage: 50 UNK, QWK
     Route: 058
     Dates: start: 20080901
  2. OMEPRAZOLE [Concomitant]
  3. NIMESULIDE [Concomitant]
  4. FOLIC ACID [Concomitant]
  5. ENBREL [Suspect]
     Indication: RHEUMATOID ARTHRITIS
     Dosage: UNK, WEEKLY
     Route: 058
     Dates: start: 20060101
  6. SIMVASTATIN [Concomitant]
  7. LORAZEPAM [Concomitant]
  8. METHOTREXATE [Concomitant]
  9. ALLOPURINOL [Concomitant]
  10. CORTICOSTEROID NOS [Concomitant]

REACTIONS (9)
  - INJECTION SITE PAIN [None]
  - INTESTINAL ULCER [None]
  - ARTHRALGIA [None]
  - DRUG INEFFECTIVE [None]
  - SKIN INJURY [None]
  - INJECTION SITE VESICLES [None]
  - PAIN IN EXTREMITY [None]
  - BACK PAIN [None]
  - INCORRECT PRODUCT STORAGE [None]
